FAERS Safety Report 25943217 (Version 1)
Quarter: 2025Q4

REPORT INFORMATION
  Report Type: Spontaneous
  Country: US (occurrence: None)
  Receive Date: 20251020
  Receipt Date: 20251020
  Transmission Date: 20260117
  Serious: Yes (Other)
  Sender: FDA-CTU
  Company Number: None

PATIENT
  Age: 40 Year
  Sex: Female

DRUGS (1)
  1. ENDOMETRIN [Suspect]
     Active Substance: PROGESTERONE
     Indication: Infertility female
     Dosage: FREQUENCY : TWICE A DAY;?

REACTIONS (1)
  - Alopecia [None]
